FAERS Safety Report 4504448-6 (Version None)
Quarter: 2004Q4

REPORT INFORMATION
  Report Type: 
  Country: None (occurrence: None)
  Receive Date: 20041118
  Receipt Date: 20030929
  Transmission Date: 20050328
  Serious: Yes (Hospitalization, Other)
  Sender: FDA-Public Use
  Company Number: US-MERCK-0310USA00104

PATIENT
  Age: 71 Year
  Sex: Female
  Weight: 61 kg

DRUGS (4)
  1. VIOXX [Suspect]
     Indication: PAIN
     Route: 048
     Dates: start: 20000101
  2. VIOXX [Suspect]
     Indication: GASTRIC DISORDER
     Route: 048
     Dates: start: 20000101
  3. ESTROGENS (UNSPECIFIED) [Concomitant]
     Indication: HORMONE REPLACEMENT THERAPY
     Route: 065
  4. PROPULSID [Concomitant]
     Route: 065

REACTIONS (50)
  - ABDOMINAL DISTENSION [None]
  - ABDOMINAL PAIN [None]
  - ACUTE SINUSITIS [None]
  - ANXIETY [None]
  - ARTHROPATHY [None]
  - BACK INJURY [None]
  - BACK PAIN [None]
  - BLOOD PRESSURE INCREASED [None]
  - BRONCHITIS [None]
  - CARDIOMEGALY [None]
  - CARPAL TUNNEL SYNDROME [None]
  - CONTUSION [None]
  - CONVULSION [None]
  - COUGH [None]
  - CYSTITIS [None]
  - CYSTOURETHROCELE [None]
  - DEPRESSION [None]
  - DIARRHOEA [None]
  - DIVERTICULUM [None]
  - DIVERTICULUM INTESTINAL [None]
  - DIZZINESS [None]
  - DYSPEPSIA [None]
  - EMOTIONAL DISTRESS [None]
  - FALL [None]
  - GASTROOESOPHAGEAL REFLUX DISEASE [None]
  - HAEMORRHOIDS [None]
  - HERPES ZOSTER [None]
  - HYPOTHYROIDISM [None]
  - INJURY [None]
  - INSOMNIA [None]
  - INTERVERTEBRAL DISC DEGENERATION [None]
  - INTERVERTEBRAL DISC DISPLACEMENT [None]
  - IRRITABLE BOWEL SYNDROME [None]
  - LUMBAR RADICULOPATHY [None]
  - LUNG INFILTRATION [None]
  - MENISCUS LESION [None]
  - MUSCLE SPASMS [None]
  - NAUSEA [None]
  - NOCTURIA [None]
  - OSTEOARTHRITIS [None]
  - PARAESTHESIA [None]
  - PHARYNGITIS [None]
  - PHARYNGOLARYNGEAL PAIN [None]
  - PNEUMONIA [None]
  - RADIUS FRACTURE [None]
  - RHINORRHOEA [None]
  - SINUS CONGESTION [None]
  - STOMACH DISCOMFORT [None]
  - THYROID DISORDER [None]
  - WEIGHT DECREASED [None]
